FAERS Safety Report 14436973 (Version 1)
Quarter: 2018Q1

REPORT INFORMATION
  Report Type: Spontaneous
  Country: CH (occurrence: CH)
  Receive Date: 20180125
  Receipt Date: 20180125
  Transmission Date: 20180509
  Serious: Yes (Other)
  Sender: FDA-Public Use
  Company Number: CH-BAXTER-2017BAX038752

PATIENT
  Age: 35 Year
  Sex: Female

DRUGS (1)
  1. ENDOXAN 1 G [Suspect]
     Active Substance: CYCLOPHOSPHAMIDE
     Indication: SYSTEMIC SCLERODERMA
     Route: 042
     Dates: start: 20170601, end: 20171021

REACTIONS (3)
  - Treatment failure [Unknown]
  - Pulmonary fibrosis [Unknown]
  - Systemic scleroderma [Unknown]
